FAERS Safety Report 25601753 (Version 1)
Quarter: 2025Q3

REPORT INFORMATION
  Report Type: Report from Study
  Country: EU (occurrence: EU)
  Receive Date: 20250724
  Receipt Date: 20250724
  Transmission Date: 20251020
  Serious: Yes (Other)
  Sender: PFIZER
  Company Number: EU-PFIZER INC-PV202500088214

PATIENT

DRUGS (1)
  1. TEMSIROLIMUS [Suspect]
     Active Substance: TEMSIROLIMUS
     Indication: Genitourinary tract neoplasm

REACTIONS (3)
  - Pancytopenia [Unknown]
  - Intestinal perforation [Unknown]
  - Peritonitis [Unknown]
